FAERS Safety Report 25871744 (Version 1)
Quarter: 2025Q4

REPORT INFORMATION
  Report Type: Spontaneous
  Country: GB (occurrence: GB)
  Receive Date: 20251001
  Receipt Date: 20251001
  Transmission Date: 20260117
  Serious: Yes (Other)
  Sender: ELI LILLY AND COMPANY
  Company Number: None

PATIENT
  Age: 27 Year
  Sex: Male
  Weight: 150 kg

DRUGS (1)
  1. MOUNJARO [Suspect]
     Active Substance: TIRZEPATIDE
     Indication: Weight control
     Dosage: 10 MG, WEEKLY (1/W)
     Route: 065
     Dates: start: 202505

REACTIONS (3)
  - Off label use [Unknown]
  - Diarrhoea [Recovered/Resolved with Sequelae]
  - Eructation [Recovered/Resolved with Sequelae]

NARRATIVE: CASE EVENT DATE: 20250801
